FAERS Safety Report 4984160-X (Version None)
Quarter: 2006Q2

REPORT INFORMATION
  Report Type: 
  Country: None (occurrence: None)
  Receive Date: 20060425
  Receipt Date: 20060425
  Transmission Date: 20061013
  Serious: No
  Sender: FDA-Public Use
  Company Number: None

PATIENT
  Sex: Female
  Weight: 49.3 kg

DRUGS (2)
  1. AMBIEN [Suspect]
     Indication: INSOMNIA
     Dosage: 10 MG  HS  PO
     Route: 048
     Dates: start: 20060406
  2. EFFEXOR XR [Concomitant]

REACTIONS (4)
  - AMNESIA [None]
  - INCOHERENT [None]
  - RESTLESSNESS [None]
  - SLEEP WALKING [None]
